FAERS Safety Report 21125220 (Version 8)
Quarter: 2023Q1

REPORT INFORMATION
  Report Type: Spontaneous
  Country: US (occurrence: US)
  Receive Date: 20220725
  Receipt Date: 20230327
  Transmission Date: 20230417
  Serious: Yes (Other)
  Sender: FDA-Public Use
  Company Number: US-GLAXOSMITHKLINE-US2022AMR109491

PATIENT

DRUGS (3)
  1. ZEJULA [Suspect]
     Active Substance: NIRAPARIB
     Indication: Ovarian cancer
     Dosage: 200 MG, QD
  2. ZEJULA [Suspect]
     Active Substance: NIRAPARIB
     Dosage: 1 DF, QOD (100MG 1 CAPSULE BY MOUTH EVERY OTHER DAY)
     Route: 048
     Dates: start: 202208
  3. ZEJULA [Suspect]
     Active Substance: NIRAPARIB
     Dosage: 100 MG, QD
     Dates: end: 202302

REACTIONS (11)
  - Haematochezia [Unknown]
  - Abdominal pain upper [Unknown]
  - Platelet count decreased [Not Recovered/Not Resolved]
  - Petechiae [Recovered/Resolved]
  - Dyspepsia [Unknown]
  - Contusion [Recovered/Resolved]
  - Red blood cell count decreased [Unknown]
  - Adverse drug reaction [Unknown]
  - Cholecystectomy [Unknown]
  - Product dose omission issue [Unknown]
  - Inappropriate schedule of product administration [Unknown]

NARRATIVE: CASE EVENT DATE: 20220720
